FAERS Safety Report 8016666-3 (Version None)
Quarter: 2012Q1

REPORT INFORMATION
  Report Type: 
  Country: None (occurrence: None)
  Receive Date: 20120102
  Receipt Date: 20111221
  Transmission Date: 20120608
  Serious: No
  Sender: FDA-Public Use
  Company Number: US-BRISTOL-MYERS SQUIBB COMPANY-16229585

PATIENT
  Age: 53 Year
  Sex: Male

DRUGS (4)
  1. TENOFOVIR [Interacting]
     Indication: HIV INFECTION
     Dosage: PART OF HAART
     Route: 048
     Dates: start: 20110202, end: 20110627
  2. RIFAMPIN [Interacting]
  3. SUSTIVA [Suspect]
     Indication: HIV INFECTION
     Dosage: APROX 3-4 WEEKS,PART OF HAART,NSMO
     Route: 048
     Dates: start: 20110202, end: 20110627
  4. ISONIAZID [Interacting]

REACTIONS (3)
  - HEPATIC ENZYME INCREASED [None]
  - DIZZINESS [None]
  - DRUG INTERACTION [None]
